FAERS Safety Report 16730098 (Version 1)
Quarter: 2019Q3

REPORT INFORMATION
  Report Type: Spontaneous
  Country: US (occurrence: US)
  Receive Date: 20190822
  Receipt Date: 20190822
  Transmission Date: 20191005
  Serious: No
  Sender: FDA-Public Use
  Company Number: US-PACIRA-201500189

PATIENT
  Age: 54 Year
  Sex: Male

DRUGS (13)
  1. VANCOMYCIN [Concomitant]
     Active Substance: VANCOMYCIN
     Indication: INFECTION PROPHYLAXIS
     Dosage: 2 G, 1X, FREQUENCY : 1X
     Route: 050
  2. OXYCODONE [Concomitant]
     Active Substance: OXYCODONE
     Indication: PAIN
     Dosage: 10 MG, EVERY 4 HOURS PRN OXYCODONE IR
     Route: 048
  3. CEFAZOLIN [Concomitant]
     Active Substance: CEFAZOLIN
     Indication: INFECTION PROPHYLAXIS
     Dosage: 2 G, 1X, FREQUENCY : 1X
     Route: 042
  4. HYDROMORPHONE [Concomitant]
     Active Substance: HYDROMORPHONE
     Indication: PAIN
     Dosage: 25 MG/250 ML PCA (PATIENT CONTROLLED ANALGESIA)
     Route: 050
  5. EXPAREL [Suspect]
     Active Substance: BUPIVACAINE
     Indication: POSTOPERATIVE ANALGESIA
     Dosage: 20 CC DILUTED WITH SALINE TO TOTAL VOLUME OF 60 CC, THEN SPLIT INTO 3 20 CC INJECTIONS, FREQUENCY 3X
     Route: 050
  6. PREGABALIN. [Concomitant]
     Active Substance: PREGABALIN
     Indication: PAIN
     Dosage: 50 MG, BID, FREQUENCY : BID
     Route: 048
  7. DURAMORPH [Concomitant]
     Active Substance: MORPHINE SULFATE
     Dosage: INJECTION 5 MG, 1X, FREQUENCY : 1X
     Route: 050
  8. AZTREONAM. [Concomitant]
     Active Substance: AZTREONAM
     Indication: INFECTION PROPHYLAXIS
     Dosage: 2 G, Q8H OVER 24 HOURS, TOTAL DOSE 6G IVPB (INTRAVENOUS PIGGY-BACK)
     Route: 042
  9. KETOROLAC [Concomitant]
     Active Substance: KETOROLAC TROMETHAMINE
     Dosage: INJECTION, 15 MG, 1X, FREQUENCY : 1X
     Route: 050
  10. MARCAINE [Concomitant]
     Active Substance: BUPIVACAINE HYDROCHLORIDE
     Dosage: 40 CC, 1X, FREQUENCY : 1X
  11. CEFTRIAXONE. [Concomitant]
     Active Substance: CEFTRIAXONE
     Indication: INFECTION PROPHYLAXIS
     Dosage: 1 UNK, UNK BY IVPB (INTRAVENOUS PIGGY-BACK), FREQUENCY : UNK
     Route: 042
  12. CELECOXIB. [Concomitant]
     Active Substance: CELECOXIB
     Indication: PAIN
     Dosage: 200 MG, DAILY, FREQUENCY : DAILY
     Route: 048
  13. OXYCODONE [Concomitant]
     Active Substance: OXYCODONE
     Indication: PAIN
     Dosage: 10 MG, BID OXYCODONE CR
     Route: 048

REACTIONS (5)
  - Labelled drug-drug interaction medication error [Recovered/Resolved]
  - Hypoaesthesia [Recovered/Resolved]
  - Sciatic nerve palsy [Recovered/Resolved]
  - Product administration error [Recovered/Resolved]
  - Asthenia [Recovered/Resolved]
